FAERS Safety Report 13229995 (Version 1)
Quarter: 2017Q1

REPORT INFORMATION
  Report Type: Spontaneous
  Country: HR (occurrence: HR)
  Receive Date: 20170214
  Receipt Date: 20170214
  Transmission Date: 20170428
  Serious: Yes (Other)
  Sender: FDA-Public Use
  Company Number: HR-TEVA-738374ACC

PATIENT
  Age: 59 Year
  Sex: Female

DRUGS (4)
  1. OXALEPT [Interacting]
     Active Substance: OXCARBAZEPINE
     Indication: EPILEPSY
     Dosage: 1200 MILLIGRAM DAILY;
     Route: 048
     Dates: start: 20161004
  2. INDAMID SR TABLETE [Concomitant]
     Active Substance: INDAPAMIDE
     Route: 048
  3. PINOX (LERCANIDIPINE HYDROCHLORIDE) [Interacting]
     Active Substance: LERCANIDIPINE HYDROCHLORIDE
     Indication: ESSENTIAL HYPERTENSION
     Dosage: 10 MILLIGRAM DAILY;
     Route: 048
  4. ZOTRAMID [Suspect]
     Active Substance: ACETAMINOPHEN\TRAMADOL HYDROCHLORIDE
     Indication: BONE CANCER
     Dosage: 1 DOSAGE FORMS DAILY;
     Route: 048
     Dates: start: 20161104

REACTIONS (10)
  - Apnoea [Not Recovered/Not Resolved]
  - Confusional state [Not Recovered/Not Resolved]
  - Speech disorder [None]
  - Dyspnoea [None]
  - Coordination abnormal [Not Recovered/Not Resolved]
  - Drug interaction [Not Recovered/Not Resolved]
  - Hypokinesia [Not Recovered/Not Resolved]
  - Paraesthesia [None]
  - Paraesthesia [Not Recovered/Not Resolved]
  - Hypertension [Not Recovered/Not Resolved]

NARRATIVE: CASE EVENT DATE: 201612
